FAERS Safety Report 16971024 (Version 2)
Quarter: 2020Q4

REPORT INFORMATION
  Report Type: Report from Study
  Country: BR (occurrence: BR)
  Receive Date: 20191029
  Receipt Date: 20201126
  Transmission Date: 20210113
  Serious: Yes (Other)
  Sender: FDA-Public Use
  Company Number: BR-JNJFOC-20191030626

PATIENT
  Age: 54 Year
  Sex: Female

DRUGS (5)
  1. CALCIUM                            /00060701/ [Concomitant]
     Active Substance: CALCIUM
  2. SIMPONI [Suspect]
     Active Substance: GOLIMUMAB
     Indication: ANKYLOSING SPONDYLITIS
     Route: 058
     Dates: start: 2019
  3. FUROSEMIDE. [Concomitant]
     Active Substance: FUROSEMIDE
  4. ENALAPRIL                          /00574902/ [Concomitant]
     Active Substance: ENALAPRIL
  5. VITAMIN D                          /00107901/ [Concomitant]
     Active Substance: ERGOCALCIFEROL

REACTIONS (1)
  - Mass [Unknown]

NARRATIVE: CASE EVENT DATE: 2019
